FAERS Safety Report 12425743 (Version 2)
Quarter: 2016Q3

REPORT INFORMATION
  Report Type: Spontaneous
  Country: US (occurrence: US)
  Receive Date: 20160601
  Receipt Date: 20160909
  Transmission Date: 20161109
  Serious: Yes (Hospitalization, Disabling, Other)
  Sender: FDA-Public Use
  Company Number: US-009507513-1605USA014559

PATIENT
  Sex: Female
  Weight: 77.1 kg

DRUGS (1)
  1. NUVARING [Suspect]
     Active Substance: ETHINYL ESTRADIOL\ETONOGESTREL
     Indication: CONTRACEPTION
     Dosage: 3 WEEKS IN/1 WEEK RING FREE
     Route: 067
     Dates: start: 2010, end: 2014

REACTIONS (14)
  - Vertebral artery dissection [Not Recovered/Not Resolved]
  - Cerebrovascular accident [Not Recovered/Not Resolved]
  - Psoriasis [Unknown]
  - Anxiety [Unknown]
  - Hypokalaemia [Unknown]
  - Back pain [Unknown]
  - Depression [Unknown]
  - Dehydration [Unknown]
  - Hyperlipidaemia [Unknown]
  - Pyuria [Unknown]
  - Transient ischaemic attack [Recovered/Resolved]
  - Epistaxis [Recovering/Resolving]
  - Leukocytosis [Unknown]
  - Constipation [Unknown]

NARRATIVE: CASE EVENT DATE: 201403
